FAERS Safety Report 9265179 (Version 1)
Quarter: 2013Q2

REPORT INFORMATION
  Report Type: Spontaneous
  Country: CA (occurrence: CA)
  Receive Date: 20130501
  Receipt Date: 20130501
  Transmission Date: 20140414
  Serious: Yes (Other)
  Sender: FDA-Public Use
  Company Number: CA-PFIZER INC-2013127914

PATIENT
  Age: 53 Year
  Sex: Female
  Weight: 63.49 kg

DRUGS (3)
  1. LYRICA [Suspect]
     Indication: PAIN
     Dosage: 150 MG, 1X/DAY
     Route: 048
     Dates: start: 20121212, end: 20130421
  2. LYRICA [Suspect]
     Indication: NERVE INJURY
  3. CODEINE [Concomitant]
     Indication: PAIN
     Dosage: UNK

REACTIONS (11)
  - Hypersensitivity [Not Recovered/Not Resolved]
  - Dyspnoea [Not Recovered/Not Resolved]
  - Dysphagia [Not Recovered/Not Resolved]
  - Swelling face [Not Recovered/Not Resolved]
  - Throat tightness [Not Recovered/Not Resolved]
  - Palpitations [Not Recovered/Not Resolved]
  - Amyotrophic lateral sclerosis [Not Recovered/Not Resolved]
  - Tremor [Not Recovered/Not Resolved]
  - Pain [Not Recovered/Not Resolved]
  - Nervous system disorder [Not Recovered/Not Resolved]
  - Malaise [Not Recovered/Not Resolved]
